FAERS Safety Report 8001303-4 (Version None)
Quarter: 2011Q4

REPORT INFORMATION
  Report Type: 
  Country: None (occurrence: None)
  Receive Date: 20111222
  Receipt Date: 20111220
  Transmission Date: 20120403
  Serious: Yes (Other)
  Sender: FDA-Public Use
  Company Number: US-PFIZER INC-2011309353

PATIENT
  Sex: Female

DRUGS (3)
  1. ADVIL CONGESTION RELIEF [Suspect]
     Indication: NASAL CONGESTION
     Dosage: 200 MG, 1X/DAY
     Route: 048
     Dates: start: 20111210, end: 20111216
  2. ADVIL CONGESTION RELIEF [Suspect]
     Indication: SINUS DISORDER
  3. ADVIL CONGESTION RELIEF [Suspect]
     Indication: NASAL DISORDER

REACTIONS (3)
  - LOSS OF CONSCIOUSNESS [None]
  - SINUS DISORDER [None]
  - SOMNOLENCE [None]
